FAERS Safety Report 8087719-9 (Version None)
Quarter: 2012Q1

REPORT INFORMATION
  Report Type: 
  Country: None (occurrence: None)
  Receive Date: 20120128
  Receipt Date: 20110421
  Transmission Date: 20120608
  Serious: No
  Sender: FDA-Public Use
  Company Number: US-ABBOTT-11P-163-0721144-00

PATIENT
  Age: 33 Year
  Sex: Male

DRUGS (3)
  1. HUMIRA [Suspect]
     Indication: PSORIASIS
     Dates: start: 20080901, end: 20100101
  2. MIRTAZAPINE [Concomitant]
     Indication: ANXIETY
     Dosage: AT BEDTIME
  3. HUMIRA [Suspect]
     Dates: start: 20110406

REACTIONS (3)
  - INJECTION SITE PAIN [None]
  - PSORIASIS [None]
  - PUSTULAR PSORIASIS [None]
